FAERS Safety Report 20480273 (Version 2)
Quarter: 2022Q1

REPORT INFORMATION
  Report Type: Spontaneous
  Country: US (occurrence: US)
  Receive Date: 20220216
  Receipt Date: 20220310
  Transmission Date: 20220423
  Serious: Yes (Other)
  Sender: FDA-Public Use
  Company Number: US-PFIZER INC-202200214842

PATIENT
  Age: 65 Year
  Sex: Female

DRUGS (4)
  1. IBRANCE [Suspect]
     Active Substance: PALBOCICLIB
     Dosage: 125 MG (1 DAILY FOR 21 DAYS)
     Dates: start: 20220114
  2. IBRANCE [Suspect]
     Active Substance: PALBOCICLIB
     Dosage: 125 MG, CYCLIC, DAILY FOR 21 DAYS ON FOLLOWED BY 7 DAYS OFF. REPEAT EVERY 28 DAYS
     Route: 048
     Dates: start: 20220104
  3. LETROZOLE [Concomitant]
     Active Substance: LETROZOLE
  4. ACETAMINOPHEN\HYDROCODONE [Concomitant]
     Active Substance: ACETAMINOPHEN\HYDROCODONE
     Dosage: UNK

REACTIONS (10)
  - Pleural effusion [Recovered/Resolved]
  - Haemoglobin decreased [Unknown]
  - Stomatitis [Unknown]
  - Fatigue [Unknown]
  - Pain [Unknown]
  - Chest pain [Unknown]
  - Pyrexia [Unknown]
  - Illness [Unknown]
  - Oral infection [Unknown]
  - Cough [Recovered/Resolved]
